FAERS Safety Report 8267114-X (Version None)
Quarter: 2012Q2

REPORT INFORMATION
  Report Type: 
  Country: None (occurrence: None)
  Receive Date: 20120409
  Receipt Date: 20120330
  Transmission Date: 20120825
  Serious: Yes (Hospitalization)
  Sender: FDA-Public Use
  Company Number: JP-VERTEX PHARMACEUTICALS INC.-AE-2012-002911

PATIENT
  Age: 55 Year
  Sex: Female

DRUGS (5)
  1. REBETOL [Concomitant]
     Indication: HEPATITIS C
     Route: 048
     Dates: start: 20120223, end: 20120225
  2. TELAVIC (TELAPREVIR) [Suspect]
     Indication: HEPATITIS C
     Route: 048
     Dates: start: 20120223, end: 20120225
  3. PEG-INTRON [Concomitant]
     Indication: HEPATITIS C
     Route: 058
     Dates: start: 20120223, end: 20120225
  4. PEG-INTRON [Concomitant]
     Route: 058
     Dates: start: 20120308
  5. REBETOL [Concomitant]
     Route: 048
     Dates: start: 20120308

REACTIONS (3)
  - PRURITUS [None]
  - PYREXIA [None]
  - ERYTHEMA [None]
